FAERS Safety Report 6293451-4 (Version None)
Quarter: 2009Q3

REPORT INFORMATION
  Report Type: 
  Country: None (occurrence: None)
  Receive Date: 20090803
  Receipt Date: 20090728
  Transmission Date: 20100115
  Serious: No
  Sender: FDA-Public Use
  Company Number: US-ASTRAZENECA-2009UW21453

PATIENT
  Sex: Female
  Weight: 49.9 kg

DRUGS (5)
  1. NEXIUM [Suspect]
     Indication: DYSPEPSIA
     Route: 048
  2. NEXIUM [Suspect]
     Route: 048
  3. LIPITOR [Concomitant]
  4. EVISTA [Concomitant]
  5. CALCIUM [Concomitant]

REACTIONS (3)
  - DRUG INEFFECTIVE [None]
  - DYSPEPSIA [None]
  - OROPHARYNGEAL PAIN [None]
